FAERS Safety Report 14369302 (Version 4)
Quarter: 2018Q2

REPORT INFORMATION
  Report Type: Report from Study
  Country: None (occurrence: US)
  Receive Date: 20180109
  Receipt Date: 20180508
  Transmission Date: 20180711
  Serious: Yes (Other)
  Sender: FDA-Public Use
  Company Number: US-ABBVIE-18P-163-2213870-00

PATIENT
  Sex: Male

DRUGS (1)
  1. SYNTHROID [Suspect]
     Active Substance: LEVOTHYROXINE SODIUM
     Indication: HYPOTHYROIDISM
     Dosage: 3 TABLET DAILY
     Route: 048
     Dates: start: 1992

REACTIONS (5)
  - Blindness [Not Recovered/Not Resolved]
  - Cataract operation [Recovered/Resolved]
  - Macular degeneration [Not Recovered/Not Resolved]
  - Amnesia [Not Recovered/Not Resolved]
  - Cataract [Recovered/Resolved]

NARRATIVE: CASE EVENT DATE: 2015
